FAERS Safety Report 10935388 (Version 1)
Quarter: 2015Q1

REPORT INFORMATION
  Report Type: Spontaneous
  Country: IN (occurrence: IN)
  Receive Date: 20150320
  Receipt Date: 20150320
  Transmission Date: 20150721
  Serious: Yes (Other)
  Sender: FDA-Public Use
  Company Number: IN-WATSON-2015-05532

PATIENT

DRUGS (4)
  1. PREDNISOLONE. [Suspect]
     Active Substance: PREDNISOLONE
     Indication: PROPHYLAXIS
  2. CIPROFLOXACIN (WATSON LABORATORIES) [Suspect]
     Active Substance: CIPROFLOXACIN
     Indication: CATARACT OPERATION
     Dosage: UNK, 10-12 TIMES A DAY
     Route: 047
  3. CIPROFLOXACIN (WATSON LABORATORIES) [Suspect]
     Active Substance: CIPROFLOXACIN
     Indication: PROPHYLAXIS
  4. PREDNISOLONE. [Suspect]
     Active Substance: PREDNISOLONE
     Indication: CATARACT OPERATION
     Dosage: UNK, 10-12 TIMES A DAY IN TAPPERING DOSES
     Route: 047

REACTIONS (2)
  - Corneal deposits [Recovered/Resolved]
  - Inappropriate schedule of drug administration [Unknown]
